FAERS Safety Report 5244344-2 (Version None)
Quarter: 2007Q1

REPORT INFORMATION
  Report Type: 
  Country: None (occurrence: None)
  Receive Date: 20070222
  Receipt Date: 20070212
  Transmission Date: 20070707
  Serious: Yes (Hospitalization, Other)
  Sender: FDA-Public Use
  Company Number: US-PFIZER INC-2006138070

PATIENT
  Sex: Female
  Weight: 77.1 kg

DRUGS (7)
  1. EXUBERA [Suspect]
     Indication: DIABETES MELLITUS NON-INSULIN-DEPENDENT
  2. LIPITOR [Suspect]
     Indication: BLOOD CHOLESTEROL
  3. TOPROL-XL [Suspect]
     Indication: HYPERTENSION
  4. PLAVIX [Suspect]
     Indication: STENT PLACEMENT
  5. ACETYLSALICYLIC ACID SRT [Suspect]
     Indication: STENT PLACEMENT
  6. PNEUMOCOCCAL VACCINE [Suspect]
     Indication: PROPHYLAXIS
     Route: 051
  7. LANTUS [Concomitant]
     Route: 051

REACTIONS (9)
  - ABDOMINAL PAIN UPPER [None]
  - ABDOMINAL SYMPTOM [None]
  - BLOOD GLUCOSE INCREASED [None]
  - CARDIAC DISORDER [None]
  - CARDIAC FAILURE CONGESTIVE [None]
  - CHEST X-RAY ABNORMAL [None]
  - DYSPNOEA [None]
  - LYMPHADENOPATHY [None]
  - MALAISE [None]
